FAERS Safety Report 11970915 (Version 1)
Quarter: 2016Q1

REPORT INFORMATION
  Report Type: Spontaneous
  Country: US (occurrence: None)
  Receive Date: 20160126
  Receipt Date: 20160126
  Transmission Date: 20160526
  Serious: Yes (Other)
  Sender: FDA-Public Use
  Company Number: None

PATIENT

DRUGS (1)
  1. PHYTONADIONE 1MG/0.5ML INTERMATIONAL MEDICATION SYSTEMS [Suspect]
     Active Substance: PHYTONADIONE
     Indication: DRUG THERAPY

REACTIONS (3)
  - Injury associated with device [None]
  - Syringe issue [None]
  - Product quality issue [None]

NARRATIVE: CASE EVENT DATE: 20160123
